FAERS Safety Report 16222495 (Version 1)
Quarter: 2019Q2

REPORT INFORMATION
  Report Type: Spontaneous
  Country: US (occurrence: US)
  Receive Date: 20190419
  Receipt Date: 20190419
  Transmission Date: 20190711
  Serious: No
  Sender: FDA-Public Use
  Company Number: None

PATIENT
  Age: 42 Year
  Sex: Female
  Weight: 69.3 kg

DRUGS (2)
  1. LOESTRIN BCP [Concomitant]
  2. AIMOVIG [Suspect]
     Active Substance: ERENUMAB-AOOE
     Indication: MIGRAINE PROPHYLAXIS
     Dosage: ?          OTHER FREQUENCY:ONCE A MONTH;?
     Route: 058
     Dates: start: 20180915, end: 20190416

REACTIONS (4)
  - Swelling of eyelid [None]
  - Eyelids pruritus [None]
  - Erythema of eyelid [None]
  - Lacrimation increased [None]

NARRATIVE: CASE EVENT DATE: 20190301
